FAERS Safety Report 12340119 (Version 1)
Quarter: 2016Q2

REPORT INFORMATION
  Report Type: Spontaneous
  Country: US (occurrence: None)
  Receive Date: 20160505
  Receipt Date: 20160505
  Transmission Date: 20160815
  Serious: Yes (Death, Hospitalization)
  Sender: FDA-Public Use
  Company Number: None

PATIENT
  Age: 11 Year
  Sex: Female
  Weight: 77.9 kg

DRUGS (4)
  1. ETOPOSIDE (VP-16) [Suspect]
     Active Substance: ETOPOSIDE
     Dates: end: 20160405
  2. CYTARABINE. [Suspect]
     Active Substance: CYTARABINE
     Dates: end: 20160406
  3. MITOXANTRONE HYDROCHLORIDE. [Suspect]
     Active Substance: MITOXANTRONE HYDROCHLORIDE
     Dates: end: 20160302
  4. DAUNORUBICIN [Suspect]
     Active Substance: DAUNORUBICIN
     Dates: end: 20160122

REACTIONS (17)
  - Pleural effusion [None]
  - Brain herniation [None]
  - Peripheral coldness [None]
  - Conjunctival haemorrhage [None]
  - Hypertension [None]
  - Agitation [None]
  - Febrile neutropenia [None]
  - Tachycardia [None]
  - Aggression [None]
  - Oedema [None]
  - Encephalopathy [None]
  - Brain oedema [None]
  - Pupil fixed [None]
  - Pyrexia [None]
  - Hyperammonaemia [None]
  - Hypothermia [None]
  - Seizure [None]

NARRATIVE: CASE EVENT DATE: 20160417
